FAERS Safety Report 5995787-0 (Version None)
Quarter: 2008Q4

REPORT INFORMATION
  Report Type: 
  Country: None (occurrence: None)
  Receive Date: 20081212
  Receipt Date: 20081003
  Transmission Date: 20090506
  Serious: No
  Sender: FDA-Public Use
  Company Number: US-ABBOTT-08P-163-0479694-00

PATIENT
  Sex: Female

DRUGS (3)
  1. HUMIRA [Suspect]
     Indication: COLITIS ULCERATIVE
     Route: 058
     Dates: start: 20080918
  2. AZACOL [Concomitant]
     Indication: COLITIS ULCERATIVE
  3. LIALDA [Concomitant]
     Indication: COLITIS ULCERATIVE

REACTIONS (3)
  - INJECTION SITE IRRITATION [None]
  - NAUSEA [None]
  - URTICARIA [None]
